FAERS Safety Report 17228466 (Version 1)
Quarter: 2020Q1

REPORT INFORMATION
  Report Type: Spontaneous
  Country: FR (occurrence: FR)
  Receive Date: 20200103
  Receipt Date: 20200103
  Transmission Date: 20200409
  Serious: Yes (Other)
  Sender: FDA-Public Use
  Company Number: FR-TEVA-2019-FR-1160776

PATIENT
  Age: 2 Year
  Sex: Male

DRUGS (4)
  1. VANCOMYCINE [Suspect]
     Active Substance: VANCOMYCIN
     Indication: WOUND INFECTION PSEUDOMONAS
     Route: 042
     Dates: start: 20191110, end: 20191115
  2. TEICOPLANINE [Suspect]
     Active Substance: TEICOPLANIN
     Indication: WOUND INFECTION PSEUDOMONAS
     Dosage: IN RELAY OF VANCOMYCIN
     Route: 042
     Dates: start: 20191115, end: 20191121
  3. FLAGYL [Suspect]
     Active Substance: METRONIDAZOLE\METRONIDAZOLE HYDROCHLORIDE
     Indication: WOUND INFECTION PSEUDOMONAS
     Route: 042
     Dates: start: 20191112, end: 20191121
  4. TAZOCILLINE [Suspect]
     Active Substance: PIPERACILLIN SODIUM\TAZOBACTAM SODIUM
     Indication: WOUND INFECTION PSEUDOMONAS
     Route: 042
     Dates: start: 20191031, end: 20191121

REACTIONS (1)
  - Drug reaction with eosinophilia and systemic symptoms [Recovering/Resolving]

NARRATIVE: CASE EVENT DATE: 20191114
